FAERS Safety Report 13824229 (Version 1)
Quarter: 2017Q3

REPORT INFORMATION
  Report Type: Spontaneous
  Country: US (occurrence: US)
  Receive Date: 20170802
  Receipt Date: 20170802
  Transmission Date: 20171127
  Serious: Yes (Other)
  Sender: FDA-Public Use
  Company Number: US-ALVOGEN-2017-ALVOGEN-092900

PATIENT
  Age: 88 Year
  Sex: Female
  Weight: 60.33 kg

DRUGS (17)
  1. OMEPRAZOLE. [Suspect]
     Active Substance: OMEPRAZOLE
     Indication: PRODUCT USED FOR UNKNOWN INDICATION
  2. BRILINTA [Suspect]
     Active Substance: TICAGRELOR
     Indication: PRODUCT USED FOR UNKNOWN INDICATION
     Route: 048
  3. ASPIRIN. [Concomitant]
     Active Substance: ASPIRIN
     Indication: PRODUCT USED FOR UNKNOWN INDICATION
     Route: 048
  4. CLOBETASOL PROPIONATE. [Concomitant]
     Active Substance: CLOBETASOL PROPIONATE
     Indication: PRODUCT USED FOR UNKNOWN INDICATION
     Dosage: 0.05 %
     Route: 061
  5. FLUTICASONE. [Concomitant]
     Active Substance: FLUTICASONE
     Indication: PRODUCT USED FOR UNKNOWN INDICATION
     Dosage: 50 MCG/ACT
     Route: 045
  6. MONTELUKAST [Concomitant]
     Active Substance: MONTELUKAST SODIUM
     Indication: PRODUCT USED FOR UNKNOWN INDICATION
     Route: 048
  7. AMLODIPINE [Concomitant]
     Active Substance: AMLODIPINE BESYLATE
     Indication: PRODUCT USED FOR UNKNOWN INDICATION
     Route: 048
  8. FAMOTIDINE. [Concomitant]
     Active Substance: FAMOTIDINE
     Indication: PRODUCT USED FOR UNKNOWN INDICATION
     Route: 048
  9. LISINOPRIL. [Suspect]
     Active Substance: LISINOPRIL
     Indication: PRODUCT USED FOR UNKNOWN INDICATION
     Route: 048
  10. CYANOCOBALAMIN. [Concomitant]
     Active Substance: CYANOCOBALAMIN
     Indication: PRODUCT USED FOR UNKNOWN INDICATION
     Dosage: 1000 MCG/ML
     Route: 030
  11. PRAVASTATIN. [Concomitant]
     Active Substance: PRAVASTATIN
     Indication: PRODUCT USED FOR UNKNOWN INDICATION
     Dosage: BY MOUTH AT BEDTIME
     Route: 048
  12. ATENOLOL. [Suspect]
     Active Substance: ATENOLOL
     Indication: PRODUCT USED FOR UNKNOWN INDICATION
     Route: 048
  13. CEPHALEXIN. [Concomitant]
     Active Substance: CEPHALEXIN
     Indication: PRODUCT USED FOR UNKNOWN INDICATION
     Route: 048
  14. OCUVITE [Concomitant]
     Active Substance: VITAMINS
     Indication: PRODUCT USED FOR UNKNOWN INDICATION
  15. FAMOTIDINE. [Concomitant]
     Active Substance: FAMOTIDINE
     Indication: PRODUCT USED FOR UNKNOWN INDICATION
     Route: 048
  16. MAGNESIUM [Concomitant]
     Active Substance: MAGNESIUM
     Indication: PRODUCT USED FOR UNKNOWN INDICATION
     Route: 048
  17. ZOLPIDEM TARTRATE. [Concomitant]
     Active Substance: ZOLPIDEM TARTRATE
     Indication: PRODUCT USED FOR UNKNOWN INDICATION
     Dosage: ONE TABLET AT BEDTIME AS NEEDED
     Route: 048

REACTIONS (60)
  - Musculoskeletal chest pain [Unknown]
  - Onychomycosis [Unknown]
  - Urinary incontinence [Unknown]
  - Deafness [Unknown]
  - Alopecia [Unknown]
  - Ataxia [Unknown]
  - Pyrexia [Unknown]
  - Haematuria [Unknown]
  - Iron deficiency anaemia [Unknown]
  - Paronychia [Unknown]
  - Peripheral venous disease [Unknown]
  - Vitamin D deficiency [Unknown]
  - Hypertensive heart disease [Unknown]
  - Alanine aminotransferase increased [Unknown]
  - Gastrooesophageal reflux disease [Recovered/Resolved]
  - Acute sinusitis [Unknown]
  - Rhinitis allergic [Unknown]
  - Arteriosclerosis [Unknown]
  - Otitis externa [Unknown]
  - Epistaxis [Unknown]
  - Macular degeneration [Unknown]
  - Pelvic pain [Unknown]
  - Dyspnoea [Unknown]
  - Subarachnoid haemorrhage [Unknown]
  - Nocturia [Unknown]
  - Atrial fibrillation [Unknown]
  - Neck pain [Unknown]
  - Hypertension [Unknown]
  - Abdominal pain [Unknown]
  - Fall [Unknown]
  - Seborrhoeic dermatitis [Unknown]
  - Trigger finger [Unknown]
  - Angina pectoris [Unknown]
  - Cellulitis [Unknown]
  - Depression [Unknown]
  - Headache [Unknown]
  - Hyperlipidaemia [Unknown]
  - Peripheral swelling [Unknown]
  - Arthralgia [Unknown]
  - Herpes zoster [Unknown]
  - Visual impairment [Unknown]
  - Vitamin B12 deficiency [Unknown]
  - Palpitations [Unknown]
  - Cystitis [Unknown]
  - Carpal tunnel syndrome [Unknown]
  - Cerumen impaction [Unknown]
  - Osteopenia [Unknown]
  - Bundle branch block right [Unknown]
  - Night sweats [Unknown]
  - Pain in extremity [Unknown]
  - Anxiety [Unknown]
  - Gastritis [Unknown]
  - Hyperglycaemia [Unknown]
  - Insomnia [Unknown]
  - Neuropathy peripheral [Unknown]
  - Sinus bradycardia [Unknown]
  - Syncope [Unknown]
  - Transient ischaemic attack [Unknown]
  - Varicose vein [Unknown]
  - Carotid bruit [Unknown]
